FAERS Safety Report 10565998 (Version 1)
Quarter: 2014Q4

REPORT INFORMATION
  Report Type: Report from Study
  Country: KR (occurrence: KR)
  Receive Date: 20141105
  Receipt Date: 20141105
  Transmission Date: 20150529
  Serious: Yes (Hospitalization)
  Sender: FDA-Public Use
  Company Number: KR-GLAXOSMITHKLINE-KR2014GSK013358

PATIENT
  Age: 76 Year
  Sex: Male
  Weight: 58 kg

DRUGS (9)
  1. LEUCOSTIM [Concomitant]
     Indication: NEUTROPENIA
     Dosage: 150 UG, QD
     Route: 058
     Dates: start: 20141002, end: 20141002
  2. XARELTO [Concomitant]
     Active Substance: RIVAROXABAN
     Indication: PULMONARY EMBOLISM
     Dosage: 15 MG, BID
     Route: 048
     Dates: start: 20140722, end: 20140906
  3. XARELTO [Concomitant]
     Active Substance: RIVAROXABAN
     Indication: PULMONARY EMBOLISM
     Dosage: 15 MG, UNK
     Route: 048
     Dates: start: 20140918, end: 20141001
  4. TOPOTECAN HYDROCHLORIDE. [Suspect]
     Active Substance: TOPOTECAN HYDROCHLORIDE
     Dosage: 2.3 MG/M2, UNK
     Route: 048
     Dates: start: 20140820, end: 20140823
  5. TOPOTECAN HYDROCHLORIDE. [Suspect]
     Active Substance: TOPOTECAN HYDROCHLORIDE
     Dosage: 2.3 MG/M2, UNK
     Route: 048
     Dates: start: 20140919, end: 20140922
  6. OTILLEN [Concomitant]
     Indication: GASTRITIS PROPHYLAXIS
     Dosage: 60 MG, TID
     Dates: start: 20140520
  7. JURNISTA [Concomitant]
     Active Substance: HYDROMORPHONE HYDROCHLORIDE
     Indication: CHEST PAIN
     Dosage: 8 MG, QD
     Route: 048
     Dates: start: 20140918
  8. ENCOVER [Concomitant]
     Dosage: 200 ML, BID
     Route: 048
     Dates: start: 20140918, end: 20141001
  9. ERDOLANT [Concomitant]
     Indication: PRODUCTIVE COUGH
     Dosage: 300 MG, BID
     Route: 048
     Dates: start: 20140520

REACTIONS (1)
  - Myalgia [Recovered/Resolved]

NARRATIVE: CASE EVENT DATE: 20141003
